FAERS Safety Report 12615222 (Version 2)
Quarter: 2016Q3

REPORT INFORMATION
  Report Type: Spontaneous
  Country: JP (occurrence: JP)
  Receive Date: 20160802
  Receipt Date: 20160930
  Transmission Date: 20161109
  Serious: Yes (Hospitalization, Other)
  Sender: FDA-Public Use
  Company Number: JP-GILEAD-2016-0224862

PATIENT
  Age: 74 Year
  Sex: Female
  Weight: 40 kg

DRUGS (8)
  1. FERROSTEC [Concomitant]
     Active Substance: SODIUM FERROUS CITRATE
     Dosage: 2 DF, UNK
     Dates: start: 20160401
  2. LANSOPRAZOLE. [Concomitant]
     Active Substance: LANSOPRAZOLE
     Dosage: 1 DF, UNK
     Dates: start: 20160401
  3. REBETOL [Suspect]
     Active Substance: RIBAVIRIN
     Dosage: 200 MG, QD
     Route: 048
     Dates: start: 20151203, end: 20160127
  4. ALLOPURINOL. [Suspect]
     Active Substance: ALLOPURINOL
     Indication: HYPERURICAEMIA
     Dosage: 1 DF, UNK
     Route: 065
     Dates: start: 20160313
  5. LOSARTAN                           /01121602/ [Concomitant]
     Active Substance: LOSARTAN
  6. MERCAZOLE                          /00022901/ [Suspect]
     Active Substance: METHIMAZOLE
     Indication: HYPERTHYROIDISM
     Dosage: 30 MG, UNK
     Route: 065
     Dates: start: 201603
  7. SOVALDI [Suspect]
     Active Substance: SOFOSBUVIR
     Indication: CHRONIC HEPATITIS C
     Dosage: 400 MG, QD
     Route: 048
     Dates: start: 20151104, end: 20160127
  8. REBETOL [Suspect]
     Active Substance: RIBAVIRIN
     Indication: CHRONIC HEPATITIS C
     Dosage: 400 MG, UNK
     Route: 048
     Dates: start: 20151104, end: 20151202

REACTIONS (6)
  - Atrial fibrillation [Recovering/Resolving]
  - Cardiac failure congestive [Recovering/Resolving]
  - Haemoglobin abnormal [Recovered/Resolved]
  - Drug eruption [Recovering/Resolving]
  - Hyperthyroidism [Recovering/Resolving]
  - Mitral valve incompetence [Recovering/Resolving]

NARRATIVE: CASE EVENT DATE: 20151202
